FAERS Safety Report 14602459 (Version 2)
Quarter: 2018Q2

REPORT INFORMATION
  Report Type: Spontaneous
  Country: US (occurrence: US)
  Receive Date: 20180306
  Receipt Date: 20180504
  Transmission Date: 20180711
  Serious: Yes (Other)
  Sender: FDA-Public Use
  Company Number: US-PFIZER INC-2018087006

PATIENT
  Age: 15 Year
  Sex: Male
  Weight: 72.56 kg

DRUGS (2)
  1. SERTRALINE [Concomitant]
     Active Substance: SERTRALINE HYDROCHLORIDE
     Indication: DEPRESSION
     Dosage: 25 MG, 1X/DAY (ONCE AT BEDTIME)
  2. QUILLICHEW ER [Suspect]
     Active Substance: METHYLPHENIDATE HYDROCHLORIDE
     Indication: ATTENTION DEFICIT/HYPERACTIVITY DISORDER
     Dosage: 40 MG, 1X/DAY (THREE QUARTERS OF A TABLET; IN THE MORNING)
     Route: 048
     Dates: start: 20180224

REACTIONS (5)
  - Irritability [Not Recovered/Not Resolved]
  - Feeling abnormal [Unknown]
  - Product substitution issue [Unknown]
  - Product prescribing issue [Unknown]
  - Intentional product use issue [Unknown]

NARRATIVE: CASE EVENT DATE: 2018
